FAERS Safety Report 12677111 (Version 1)
Quarter: 2016Q3

REPORT INFORMATION
  Report Type: Spontaneous
  Country: US (occurrence: US)
  Receive Date: 20160823
  Receipt Date: 20160823
  Transmission Date: 20161109
  Serious: No
  Sender: FDA-Public Use
  Company Number: US-TEVA-671688USA

PATIENT

DRUGS (1)
  1. VENLAFAXINE [Suspect]
     Active Substance: VENLAFAXINE HYDROCHLORIDE
     Route: 065

REACTIONS (5)
  - Drug effect decreased [Unknown]
  - Withdrawal syndrome [Unknown]
  - Product taste abnormal [Unknown]
  - Dizziness [Unknown]
  - Product solubility abnormal [Unknown]
